FAERS Safety Report 19817064 (Version 3)
Quarter: 2021Q3

REPORT INFORMATION
  Report Type: Spontaneous
  Country: IE (occurrence: IE)
  Receive Date: 20210910
  Receipt Date: 20210928
  Transmission Date: 20211014
  Serious: Yes (Disabling)
  Sender: FDA-Public Use
  Company Number: IE-AMERICAN REGENT INC-2021002320

PATIENT
  Age: 26 Year
  Sex: Female

DRUGS (23)
  1. OXYCONTIN [Concomitant]
     Active Substance: OXYCODONE HYDROCHLORIDE
     Indication: PAIN
     Dosage: DAILY DOSE: 10 MG
     Route: 065
     Dates: start: 20210729, end: 20210730
  2. MORPHINE [Concomitant]
     Active Substance: MORPHINE
     Indication: PRODUCT USED FOR UNKNOWN INDICATION
     Dosage: DAILY DOSE: 2MG PERIOP USE
     Route: 008
     Dates: start: 20210728, end: 20210728
  3. HARTMANN^S SOLUTION [Concomitant]
     Active Substance: CALCIUM CHLORIDE\POTASSIUM CHLORIDE\SODIUM CHLORIDE\SODIUM LACTATE
     Indication: PRODUCT USED FOR UNKNOWN INDICATION
     Dosage: DAILY DOSE: 3 L
     Route: 065
     Dates: start: 20210731
  4. SYNTOMETRINE                       /00145001/ [Concomitant]
     Active Substance: ERGONOVINE\OXYTOCIN
     Dosage: UNK
     Route: 065
     Dates: start: 20210802, end: 20210802
  5. BENZYLPENICILLIN [Concomitant]
     Active Substance: PENICILLIN G
     Indication: PRODUCT USED FOR UNKNOWN INDICATION
     Dosage: 3G
     Route: 042
     Dates: start: 20210728, end: 20210728
  6. CO?AMOXICLAV [AMOXICILLIN;CLAVULANATE POTASSIUM] [Concomitant]
     Active Substance: AMOXICILLIN\CLAVULANATE POTASSIUM
     Dosage: 625 MG TDS (625 MG,1 IN 8 HR)
     Route: 065
     Dates: start: 20210731, end: 20210803
  7. GENTAMICIN. [Concomitant]
     Active Substance: GENTAMICIN
     Indication: PRODUCT USED FOR UNKNOWN INDICATION
     Dosage: DAILY DOSE REPORTED AS 420G OD (420 GM,1 IN 1 D)
     Route: 065
     Dates: start: 20210729, end: 20210730
  8. SYNTOMETRINE                       /00145001/ [Concomitant]
     Active Substance: ERGONOVINE\OXYTOCIN
     Indication: PRODUCT USED FOR UNKNOWN INDICATION
     Dosage: DAILY DOSE: 500MCG/5 U PERIOP USE
     Route: 065
     Dates: start: 20210728, end: 20210728
  9. DICLOFENAC [Concomitant]
     Active Substance: DICLOFENAC
     Dosage: DAILY DOSE: 100 MG (100 MG)
     Route: 065
     Dates: start: 20210730, end: 20210803
  10. PHENYLEPHRINE [Concomitant]
     Active Substance: PHENYLEPHRINE HYDROCHLORIDE
     Indication: PRODUCT USED FOR UNKNOWN INDICATION
     Dosage: INFUSION DAILY DOSE: 100MCG/ML, PERIOP USE
     Route: 042
     Dates: start: 20210728, end: 20210728
  11. FENTANYL. [Concomitant]
     Active Substance: FENTANYL
     Indication: PRODUCT USED FOR UNKNOWN INDICATION
     Dosage: DAILY DOSE: 100 MCG, PERIOP USE
     Route: 065
     Dates: start: 20210728, end: 20210728
  12. SUGAMMADEX [Concomitant]
     Active Substance: SUGAMMADEX
     Indication: PRODUCT USED FOR UNKNOWN INDICATION
     Dosage: DAILY DOSE: 400 MG, PERIOP USE
     Route: 065
     Dates: start: 20210728, end: 20210728
  13. FERINJECT [Suspect]
     Active Substance: FERRIC CARBOXYMALTOSE
     Indication: HAEMOGLOBIN DECREASED
     Dosage: 1G STAT DOSE (1 GM)
     Route: 042
     Dates: start: 20210802, end: 202108
  14. PARACETAMOL [Concomitant]
     Active Substance: ACETAMINOPHEN
     Indication: PAIN
     Dosage: 1G QDS (1 GM, 1 IN 6 HR)
     Route: 065
     Dates: start: 20210728, end: 20210803
  15. CO?AMOXICLAV [AMOXICILLIN;CLAVULANATE POTASSIUM] [Concomitant]
     Active Substance: AMOXICILLIN\CLAVULANATE POTASSIUM
     Indication: SEPSIS
     Dosage: 1.2 G TDS (1.2 GM, 1 IN 8 HR)
     Route: 065
     Dates: start: 20210729, end: 20210730
  16. COLPERMIN [Concomitant]
     Active Substance: PEPPERMINT OIL
     Indication: PRODUCT USED FOR UNKNOWN INDICATION
     Dosage: 2 TDS (3 IN 1 D)
     Route: 042
     Dates: start: 20210729, end: 20210802
  17. OXYTOCIN. [Concomitant]
     Active Substance: OXYTOCIN
     Indication: PERIOPERATIVE ANALGESIA
     Dosage: UNK
     Route: 065
     Dates: start: 20210728, end: 20210728
  18. TRANEXAMIC ACID. [Concomitant]
     Active Substance: TRANEXAMIC ACID
     Indication: PRODUCT USED FOR UNKNOWN INDICATION
     Dosage: DAILY DOSE: 1 GRAM PERIOP USE
     Route: 065
     Dates: start: 20210728, end: 20210728
  19. CEFUROXIME. [Concomitant]
     Active Substance: CEFUROXIME
     Indication: PRODUCT USED FOR UNKNOWN INDICATION
     Dosage: DAILY DOSE: 1.5G PERIOP USE
     Route: 042
     Dates: start: 20210728, end: 20210728
  20. DICLOFENAC [Concomitant]
     Active Substance: DICLOFENAC
     Indication: PAIN
     Dosage: DAILY DOSE: 75 MG, PERIOP USE
     Route: 042
     Dates: start: 20210728, end: 20210728
  21. PABRINEX [ASCORBIC ACID;GLUCOSE;NICOTINAMIDE;PYRIDOXINE HYDROCHLORIDE; [Concomitant]
     Indication: PRODUCT USED FOR UNKNOWN INDICATION
     Dosage: DAILY DOSE: I AND II
     Route: 065
     Dates: start: 20210729, end: 20210731
  22. PROPOFOL. [Concomitant]
     Active Substance: PROPOFOL
     Indication: PRODUCT USED FOR UNKNOWN INDICATION
     Dosage: DAILY DOSE: 200 MG, PERIOP USE
     Route: 065
     Dates: start: 20210728, end: 20210728
  23. ONDANSETRON [Concomitant]
     Active Substance: ONDANSETRON
     Indication: PRODUCT USED FOR UNKNOWN INDICATION
     Dosage: DAILY DOSE: 4 MG, PERIOP USE
     Route: 065
     Dates: start: 20210728, end: 20210728

REACTIONS (1)
  - Skin discolouration [Unknown]

NARRATIVE: CASE EVENT DATE: 20210803
